FAERS Safety Report 14807091 (Version 1)
Quarter: 2018Q2

REPORT INFORMATION
  Report Type: Spontaneous
  Country: DE (occurrence: DE)
  Receive Date: 20180425
  Receipt Date: 20180425
  Transmission Date: 20180711
  Serious: Yes (Hospitalization)
  Sender: FDA-Public Use
  Company Number: DE-BAYER-2018-074659

PATIENT
  Age: 78 Year
  Sex: Male
  Weight: 74 kg

DRUGS (12)
  1. SIMVASTATIN. [Concomitant]
     Active Substance: SIMVASTATIN
     Dosage: 20 MG, QD; 20MG, 0-0-1-0, TABLETS;
     Route: 048
  2. HYDROCHLOROTHIAZIDE. [Concomitant]
     Active Substance: HYDROCHLOROTHIAZIDE
     Dosage: 25 MG, OM; 25MG, 1-0-0-0, TABLETS;
     Route: 048
  3. SPIRONOLACTONE. [Concomitant]
     Active Substance: SPIRONOLACTONE
     Dosage: 25 MG, OM; 50MG, 0.5-0-0-0, TABLETS;
     Route: 048
  4. JANUVIA [Concomitant]
     Active Substance: SITAGLIPTIN PHOSPHATE
     Dosage: 50 MG, OM; 50MG, 1-0-0-0, TABLETS;
     Route: 048
  5. AMIODARONE [Concomitant]
     Active Substance: AMIODARONE
     Dosage: 200 MG, UNK; 200MG, 1-0-1-0, TABLETS;
     Route: 048
  6. STALEVO [Concomitant]
     Active Substance: CARBIDOPA\ENTACAPONE\LEVODOPA
     Dosage: 1 DF, QD; 100/25/200 MG, 0-0-1-0, TABLETS;
     Route: 048
  7. ACETYLSALICYLIC ACID({=100 MG) [Suspect]
     Active Substance: ASPIRIN
     Dosage: 100 MG, OM; 100MG, 1-0-0-0, TABLETS;
     Route: 048
  8. METOPROLOL. [Concomitant]
     Active Substance: METOPROLOL
     Dosage: 100 MG, UNK; 100MG, 1-0-1-0, TABLETS;
     Route: 048
  9. ENTRESTO [Concomitant]
     Active Substance: SACUBITRIL\VALSARTAN
     Dosage: 1 DF, BID; 97/103MG, 1-0-1-0, TABLETS;
     Route: 048
  10. MIRTAZAPINE. [Concomitant]
     Active Substance: MIRTAZAPINE
     Dosage: 30 MG, QD; 30MG, 0-0-1-0, TABLETS;
     Route: 048
  11. APIXABAN [Suspect]
     Active Substance: APIXABAN
     Dosage: 2.5 MG, BID; 2.5MG, 1-0-1-0, TABLETS;
     Route: 048
  12. SIFROL [Concomitant]
     Active Substance: PRAMIPEXOLE
     Dosage: .18 MG, UNK; 0.18MG, AS NECESSARY, TABLETS;
     Route: 048

REACTIONS (5)
  - Renal impairment [Unknown]
  - Urogenital haemorrhage [Unknown]
  - Hyperkalaemia [Unknown]
  - Acute kidney injury [Unknown]
  - Adrenal haematoma [Unknown]
